FAERS Safety Report 10102482 (Version 1)
Quarter: 2014Q2

REPORT INFORMATION
  Report Type: Spontaneous
  Country: PT (occurrence: None)
  Receive Date: 20140422
  Receipt Date: 20140422
  Transmission Date: 20141212
  Serious: Yes (Other)
  Sender: FDA-Public Use
  Company Number: 2014P1003122

PATIENT
  Age: 52 Year
  Sex: Male

DRUGS (3)
  1. LIDOCAINE [Suspect]
     Indication: ANAESTHESIA
  2. MIDAZOLAM [Concomitant]
  3. ACETAMINOPHEN [Concomitant]

REACTIONS (4)
  - Hypotension [None]
  - Respiratory distress [None]
  - Urticaria [None]
  - Drug hypersensitivity [None]
